FAERS Safety Report 6055198-9 (Version None)
Quarter: 2009Q1

REPORT INFORMATION
  Report Type: 
  Country: None (occurrence: None)
  Receive Date: 20090123
  Receipt Date: 20090113
  Transmission Date: 20090719
  Serious: Yes (Disabling)
  Sender: FDA-Public Use
  Company Number: APP200800434

PATIENT
  Age: 42 Year
  Sex: Male

DRUGS (2)
  1. BUPIVACAINE HYDROCHLORIDE AND EPINEPHRINE [Suspect]
     Indication: MUSCULOSKELETAL PAIN
     Dosage: CONTINUOUS VIA PAIN PUMP
     Dates: start: 20020301
  2. I-FLOW PAIN BUSTER PAIN PUMP [Suspect]
     Indication: MUSCULOSKELETAL PAIN
     Dates: start: 20020301

REACTIONS (9)
  - ARTHRALGIA [None]
  - ARTHROFIBROSIS [None]
  - BONE CYST [None]
  - BURSITIS [None]
  - CHONDROLYSIS [None]
  - JOINT RANGE OF MOTION DECREASED [None]
  - JOINT STIFFNESS [None]
  - MUSCULAR WEAKNESS [None]
  - OSTEOARTHRITIS [None]
